FAERS Safety Report 24627600 (Version 4)
Quarter: 2025Q1

REPORT INFORMATION
  Report Type: Spontaneous
  Country: CA (occurrence: CA)
  Receive Date: 20241116
  Receipt Date: 20250103
  Transmission Date: 20250409
  Serious: Yes (Hospitalization, Other)
  Sender: CSL BEHRING
  Company Number: CA-BEH-2024183823

PATIENT
  Age: 71 Year
  Sex: Male
  Weight: 68.1 kg

DRUGS (7)
  1. PRIVIGEN [Suspect]
     Active Substance: HUMAN IMMUNOGLOBULIN G
     Indication: Thrombocytopenic purpura
     Dosage: 400 ML, QID (STRENGTH: 40G)
     Route: 042
     Dates: start: 20231011, end: 20231011
  2. PRIVIGEN [Suspect]
     Active Substance: HUMAN IMMUNOGLOBULIN G
     Dosage: 200 ML, QID (STRENGTH: 20 G)
     Route: 042
     Dates: start: 20231011, end: 20231011
  3. PRIVIGEN [Suspect]
     Active Substance: HUMAN IMMUNOGLOBULIN G
     Route: 065
     Dates: start: 20231110, end: 20231110
  4. PRIVIGEN [Suspect]
     Active Substance: HUMAN IMMUNOGLOBULIN G
     Route: 065
     Dates: start: 20231110, end: 20231110
  5. LASIX [Concomitant]
     Active Substance: FUROSEMIDE
     Route: 042
  6. ZOFRAN [Concomitant]
     Active Substance: ONDANSETRON HYDROCHLORIDE
     Route: 042
  7. UNSPECIFIED INGREDIENT [Concomitant]
     Active Substance: UNSPECIFIED INGREDIENT
     Route: 042
     Dates: start: 20231110

REACTIONS (18)
  - Cerebrovascular accident [Unknown]
  - Fatigue [Unknown]
  - Asthenia [Unknown]
  - Ataxia [Unknown]
  - Thrombotic stroke [Unknown]
  - Skin warm [Unknown]
  - Headache [Unknown]
  - Atrioventricular block [Unknown]
  - Thrombosis [Recovered/Resolved]
  - Dysarthria [Unknown]
  - Dizziness [Unknown]
  - Diplopia [Unknown]
  - Drooling [Unknown]
  - Eyelid ptosis [Unknown]
  - Paresis [Unknown]
  - Hemiparesis [Unknown]
  - Transfusion reaction [Unknown]
  - Myocardial infarction [Unknown]

NARRATIVE: CASE EVENT DATE: 20231111
